FAERS Safety Report 8049641-3 (Version None)
Quarter: 2012Q1

REPORT INFORMATION
  Report Type: 
  Country: None (occurrence: None)
  Receive Date: 20120117
  Receipt Date: 20120110
  Transmission Date: 20120608
  Serious: Yes (Hospitalization)
  Sender: FDA-Public Use
  Company Number: US-GLAXOSMITHKLINE-A0845235A

PATIENT
  Age: 67 Year
  Sex: Male
  Weight: 102.3 kg

DRUGS (4)
  1. LIPITOR [Concomitant]
  2. TOPROL-XL [Concomitant]
  3. AVANDIA [Suspect]
     Indication: DIABETES MELLITUS
     Dosage: 4MG PER DAY
     Route: 048
     Dates: start: 19990601, end: 20060501
  4. PRANDIN [Concomitant]

REACTIONS (3)
  - MYOCARDIAL INFARCTION [None]
  - DYSPNOEA [None]
  - CARDIAC FAILURE CONGESTIVE [None]
